FAERS Safety Report 7561062-6 (Version None)
Quarter: 2011Q2

REPORT INFORMATION
  Report Type: 
  Country: None (occurrence: None)
  Receive Date: 20110620
  Receipt Date: 20110620
  Transmission Date: 20111010
  Serious: Yes (Other)
  Sender: FDA-Public Use
  Company Number: None

PATIENT
  Age: 76 Year
  Sex: Male
  Weight: 62.1428 kg

DRUGS (3)
  1. LEVAQUIN [Suspect]
     Indication: LUNG INFECTION
     Dosage: 2 PD PO
     Route: 048
     Dates: start: 20100501, end: 20100701
  2. LEVAQUIN [Suspect]
     Indication: INFLUENZA
     Dosage: 2 PD PO
     Route: 048
     Dates: start: 20100501, end: 20100701
  3. CIPROFLOXACIN HCL [Suspect]
     Indication: URINARY TRACT INFECTION
     Dosage: 2 PD PO
     Route: 048
     Dates: start: 20110301, end: 20110501

REACTIONS (2)
  - TENDONITIS [None]
  - GAIT DISTURBANCE [None]
